FAERS Safety Report 19311953 (Version 2)
Quarter: 2021Q2

REPORT INFORMATION
  Report Type: Report from Study
  Country: JP (occurrence: JP)
  Receive Date: 20210527
  Receipt Date: 20210607
  Transmission Date: 20210717
  Serious: Yes (Death, Hospitalization, Disabling, Other)
  Sender: FDA-Public Use
  Company Number: JP-AMGEN-JPNCT2018117880

PATIENT
  Age: 80 Year
  Sex: Male

DRUGS (29)
  1. PREDONINE [Concomitant]
     Active Substance: PREDNISOLONE
     Indication: RHEUMATOID ARTHRITIS
     Dosage: 9 MILLIGRAM
     Route: 048
  2. DARBEPOETIN ALFA [Suspect]
     Active Substance: DARBEPOETIN ALFA
     Dosage: 240 MICROGRAM
     Route: 058
     Dates: start: 20191227, end: 20191227
  3. KN NO.3 [Concomitant]
     Active Substance: DEXTROSE\POTASSIUM CHLORIDE\SODIUM CHLORIDE\SODIUM LACTATE
     Dosage: 500 ML
     Route: 065
     Dates: start: 20191002, end: 20191007
  4. GLUCOSE [Concomitant]
     Active Substance: DEXTROSE
     Dosage: 2 DF
     Route: 065
     Dates: start: 20200809, end: 20200812
  5. KALIMATE [Concomitant]
     Active Substance: CALCIUM POLYSTYRENE SULFONATE
     Dosage: 3 DF
     Route: 048
     Dates: start: 20200809
  6. DARBEPOETIN ALFA [Suspect]
     Active Substance: DARBEPOETIN ALFA
     Dosage: 240 MICROGRAM, QWK
     Route: 058
     Dates: start: 20200107, end: 20200507
  7. DARBEPOETIN ALFA [Suspect]
     Active Substance: DARBEPOETIN ALFA
     Dosage: 240 MICROGRAM, QWK
     Route: 058
     Dates: start: 20200519, end: 20200728
  8. TAKEPRON [Concomitant]
     Active Substance: LANSOPRAZOLE
     Dosage: 30 MILLIGRAM
     Route: 048
  9. BFLUID [Concomitant]
     Active Substance: AMINO ACIDS\DEXTROSE\ELECTROLYTES NOS\VITAMINS
     Dosage: 500 ML
     Route: 065
     Dates: start: 20191002, end: 20191017
  10. CEFTRIAXONE SODIUM HYDRATE [Concomitant]
     Active Substance: CEFTRIAXONE SODIUM
     Dosage: 2 G
     Route: 065
     Dates: start: 20200809, end: 20200811
  11. RIMATIL [Concomitant]
     Active Substance: BUCILLAMINE
     Indication: RHEUMATOID ARTHRITIS
     Dosage: 200 MG
     Route: 048
     Dates: end: 20200808
  12. CALCICOL [Concomitant]
     Active Substance: CALCIUM GLUCONATE
     Dosage: 2 DF
     Route: 065
     Dates: start: 20200809, end: 20200809
  13. HUMULIN R [Concomitant]
     Active Substance: INSULIN HUMAN
     Dosage: 8 IU
     Route: 065
     Dates: start: 20200809, end: 20200812
  14. MEROPENEM. [Concomitant]
     Active Substance: MEROPENEM
     Dosage: 1 G
     Route: 065
     Dates: start: 20200811
  15. JUSO [Concomitant]
     Active Substance: SODIUM BICARBONATE
     Dosage: 3 G
     Route: 048
     Dates: start: 20200809
  16. TAKEPRON [Concomitant]
     Active Substance: LANSOPRAZOLE
     Dosage: 30 MG
     Route: 048
  17. CEFMETAZOLE SODIUM [Concomitant]
     Active Substance: CEFMETAZOLE SODIUM
     Indication: PYREXIA
     Dosage: 2 G
     Route: 065
     Dates: start: 20191025, end: 20191029
  18. LEVOFLOXACIN HEMIHYDRATE [Concomitant]
     Active Substance: LEVOFLOXACIN
     Dosage: 500 MG
     Route: 065
     Dates: start: 20191029, end: 20191031
  19. DARBEPOETIN ALFA [Suspect]
     Active Substance: DARBEPOETIN ALFA
     Indication: MYELODYSPLASTIC SYNDROME
     Dosage: 240 MICROGRAM, QWK
     Route: 058
     Dates: start: 20150818, end: 20170801
  20. DARBEPOETIN ALFA [Suspect]
     Active Substance: DARBEPOETIN ALFA
     Dosage: 240 MICROGRAM, QWK
     Route: 058
     Dates: start: 20200804
  21. PREDONINE [Concomitant]
     Active Substance: PREDNISOLONE
     Dosage: 9 MG
     Route: 048
  22. FEBURIC [Concomitant]
     Active Substance: FEBUXOSTAT
     Dosage: 20 MG
     Route: 048
     Dates: start: 20180703
  23. BFLUID [Concomitant]
     Active Substance: AMINO ACIDS\DEXTROSE\ELECTROLYTES NOS\VITAMINS
     Dosage: 500 ML
     Route: 065
     Dates: start: 20191026, end: 20191111
  24. LACTEC G [Concomitant]
     Active Substance: CALCIUM CHLORIDE\POTASSIUM CHLORIDE\SODIUM CHLORIDE\SODIUM LACTATE\SORBITOL
     Dosage: 500 ML
     Route: 065
     Dates: start: 20191026, end: 20191106
  25. VITAMEDIN [BENFOTIAMINE;CYANOCOBALAMIN;PYRIDOXINE HYDROCHLORIDE] [Concomitant]
     Dosage: 1 DF
     Route: 065
     Dates: start: 20191026, end: 20191111
  26. DARBEPOETIN ALFA [Suspect]
     Active Substance: DARBEPOETIN ALFA
     Dosage: 240 MICROGRAM, QWK
     Route: 058
     Dates: start: 20170815, end: 20191223
  27. SOLULACT D [Concomitant]
     Dosage: 500 ML
     Route: 065
     Dates: start: 20191107, end: 20191111
  28. ASCORBIC ACID. [Concomitant]
     Active Substance: ASCORBIC ACID
     Dosage: 500 MG
     Route: 065
     Dates: start: 20191026, end: 20191111
  29. KN NO.1 [Concomitant]
     Dosage: 500 ML
     Route: 065
     Dates: start: 20200809, end: 20200812

REACTIONS (17)
  - Haematochezia [Recovered/Resolved]
  - Infection [Recovering/Resolving]
  - Large intestine polyp [Recovered/Resolved]
  - Large intestine polyp [Recovered/Resolved]
  - Large intestine polyp [Recovered/Resolved]
  - Platelet count decreased [Not Recovered/Not Resolved]
  - Diabetic nephropathy [Unknown]
  - Pyrexia [Recovering/Resolving]
  - Duodenal stenosis [Recovered/Resolved]
  - Acute myeloid leukaemia [Fatal]
  - Melaena [Recovered/Resolved]
  - Pyrexia [Recovered/Resolved]
  - Melaena [Recovered/Resolved]
  - Vomiting [Recovered/Resolved]
  - Blood uric acid increased [Recovering/Resolving]
  - Renal failure [Recovered/Resolved with Sequelae]
  - Infection [Recovered/Resolved]

NARRATIVE: CASE EVENT DATE: 20180410
